FAERS Safety Report 24443668 (Version 2)
Quarter: 2024Q4

REPORT INFORMATION
  Report Type: Report from Study
  Country: US (occurrence: US)
  Receive Date: 20241016
  Receipt Date: 20241017
  Transmission Date: 20250114
  Serious: No
  Sender: ROCHE
  Company Number: US-ROCHE-2045571

PATIENT
  Age: 45 Year
  Sex: Female

DRUGS (10)
  1. RITUXAN [Suspect]
     Active Substance: RITUXIMAB
     Indication: Thrombotic microangiopathy
     Dosage: 800 MG IV WEEKLY * 4?BSA 2.02?REFILL 1 YEAR? FREQUENCY TEXT:IV WEEKLY * 4
     Route: 042
     Dates: start: 20171205
  2. RITUXAN [Suspect]
     Active Substance: RITUXIMAB
     Dosage: DATE OF TREATMENT:22/10/2021,02/10/2021,25/09/2021 AND 18/09/2021, 17/JAN/2024, 24/JAN/2024, 31/JAN/
     Route: 041
     Dates: start: 20191002
  3. RITUXAN [Suspect]
     Active Substance: RITUXIMAB
     Route: 041
     Dates: start: 20190925
  4. RITUXAN [Suspect]
     Active Substance: RITUXIMAB
     Route: 041
     Dates: start: 20190918
  5. RITUXAN [Suspect]
     Active Substance: RITUXIMAB
     Route: 041
     Dates: start: 20190911
  6. LIPITOR [Concomitant]
     Active Substance: ATORVASTATIN CALCIUM
     Dosage: TAKE 1 TAB 40 MG BY MOUTH NIGHTLY
     Route: 048
  7. ATIVAN [Concomitant]
     Active Substance: LORAZEPAM
     Dosage: TAKE 1 TAB BY MOUTH DAILY
     Route: 048
  8. ELOCON [Concomitant]
     Active Substance: MOMETASONE FUROATE
     Dosage: APPLY TOPICALLY DAILY. APPLY TO AFFECTED AREA.
     Route: 061
  9. ZYPREXA [Concomitant]
     Active Substance: OLANZAPINE
     Route: 048
  10. ZOLOFT [Concomitant]
     Active Substance: SERTRALINE HYDROCHLORIDE
     Dosage: TAKE 2 TAB BY MOUTH DAILY
     Route: 048

REACTIONS (2)
  - Off label use [Unknown]
  - No adverse event [Unknown]
